FAERS Safety Report 4381945-8 (Version None)
Quarter: 2004Q2

REPORT INFORMATION
  Report Type: 
  Country: None (occurrence: None)
  Receive Date: 20040615
  Receipt Date: 20040608
  Transmission Date: 20050107
  Serious: Yes (Hospitalization)
  Sender: FDA-Public Use
  Company Number: 2004-BP-04175RO

PATIENT
  Age: 69 Year
  Sex: Male

DRUGS (5)
  1. LEUCOVORIN CALCIUM [Suspect]
     Indication: GASTRIC CANCER
     Dosage: 90 MG, PO
     Route: 048
     Dates: start: 20040506, end: 20040506
  2. TAXOL [Suspect]
     Indication: GASTRIC CANCER
     Dosage: 124 MG, IV
     Route: 042
     Dates: start: 20040506, end: 20040506
  3. UFT [Suspect]
     Indication: GASTRIC CANCER
     Dosage: 500 MG, PO
     Route: 048
     Dates: start: 20040506, end: 20040506
  4. GASTRO-TEMELOTS (METOCLOPRAMIDE HYDROCHLORIDE) [Concomitant]
  5. FARBUTOL [Concomitant]

REACTIONS (4)
  - FEBRILE NEUTROPENIA [None]
  - OEDEMA PERIPHERAL [None]
  - PAIN IN EXTREMITY [None]
  - WHITE BLOOD CELL COUNT DECREASED [None]
